FAERS Safety Report 5086130-2 (Version None)
Quarter: 2006Q3

REPORT INFORMATION
  Report Type: 
  Country: None (occurrence: None)
  Receive Date: 20060818
  Receipt Date: 20060808
  Transmission Date: 20061208
  Serious: Yes (Hospitalization)
  Sender: FDA-Public Use
  Company Number: 2006049202

PATIENT
  Age: 47 Year
  Sex: Female

DRUGS (17)
  1. CLINDAMYCIN HYDROCHLORIDE [Suspect]
     Indication: DRUG USE FOR UNKNOWN INDICATION
     Dosage: 1200 MG (600 MG, 2 IN 1 D), INTRAVENOUS
     Route: 042
     Dates: start: 20060127, end: 20060128
  2. GENTAMICIN [Concomitant]
  3. TAGAMET [Concomitant]
  4. METRONIDAZOLE [Concomitant]
  5. ACETAMINOPHEN [Concomitant]
  6. ACUPAN [Concomitant]
  7. CELOCURIN (SUXAMETHONIUM CHLORIDE) [Concomitant]
  8. NIMBEX [Concomitant]
  9. RINGER-LACTATE SOLUTION (CALCIUM CHLORIDE DIHYDRATE, POTASSIUM CHLORID [Concomitant]
  10. DROPERIDOL [Concomitant]
  11. THIOPENTAL SODIUM [Concomitant]
  12. MORPHINE SULFATE [Concomitant]
  13. ULTIVA [Concomitant]
  14. ATROPINE SULFATE [Concomitant]
  15. ZOFRAN [Concomitant]
  16. PROSTIGMIN (NEOSTIGMINE BROMIDE) [Concomitant]
  17. VOLUVEN (HETASTARCH) [Concomitant]

REACTIONS (4)
  - ACUTE GENERALISED EXANTHEMATOUS PUSTULOSIS [None]
  - DERMATITIS ALLERGIC [None]
  - PYREXIA [None]
  - SKIN TEST POSITIVE [None]
